FAERS Safety Report 6518245-3 (Version None)
Quarter: 2009Q4

REPORT INFORMATION
  Report Type: 
  Country: None (occurrence: None)
  Receive Date: 20091223
  Receipt Date: 20091223
  Transmission Date: 20100525
  Serious: Yes (Disabling)
  Sender: FDA-Public Use
  Company Number: None

PATIENT
  Age: 73 Year
  Sex: Male
  Weight: 77.5651 kg

DRUGS (2)
  1. UROXATRAL [Suspect]
     Indication: PROSTATIC DISORDER
     Dosage: 1 TAB 1X DAILY
     Dates: start: 20091203
  2. ALFUZOSIN HYDROCHLORIDE [Suspect]
     Indication: PROSTATIC DISORDER
     Dates: start: 20091204

REACTIONS (1)
  - DIPLOPIA [None]
